FAERS Safety Report 4614799-2 (Version None)
Quarter: 2005Q1

REPORT INFORMATION
  Report Type: 
  Country: None (occurrence: None)
  Receive Date: 20050322
  Receipt Date: 20050315
  Transmission Date: 20050727
  Serious: Yes (Hospitalization)
  Sender: FDA-Public Use
  Company Number: 200512335GDDC

PATIENT
  Age: 44 Year
  Sex: Female

DRUGS (4)
  1. METRONIDAZOLE [Suspect]
     Indication: APPENDICITIS
     Dosage: DOSE: UNK
     Route: 042
     Dates: start: 20050310, end: 20050312
  2. METRONIDAZOLE [Suspect]
     Dosage: DOSE: UNK
     Route: 048
     Dates: start: 20050312
  3. CEFUROXIME [Concomitant]
     Dosage: DOSE: UNK
     Route: 042
     Dates: start: 20050310
  4. CEPHALEXIN [Concomitant]
     Dosage: DOSE: UNK

REACTIONS (1)
  - PSYCHOTIC DISORDER [None]
